FAERS Safety Report 25060533 (Version 1)
Quarter: 2025Q1

REPORT INFORMATION
  Report Type: Spontaneous
  Country: US (occurrence: US)
  Receive Date: 20250310
  Receipt Date: 20250310
  Transmission Date: 20250408
  Serious: No
  Sender: TEIKOKU
  Company Number: US-TPU-TPU-2025-00096

PATIENT
  Sex: Female

DRUGS (1)
  1. LIDOCAINE PATCH [Suspect]
     Active Substance: LIDOCAINE
     Indication: Spinal pain

REACTIONS (2)
  - Product size issue [Unknown]
  - Application site irritation [Unknown]
